FAERS Safety Report 7359639-6 (Version None)
Quarter: 2011Q1

REPORT INFORMATION
  Report Type: 
  Country: None (occurrence: None)
  Receive Date: 20110317
  Receipt Date: 20100617
  Transmission Date: 20110831
  Serious: No
  Sender: FDA-Public Use
  Company Number: US-PFIZER INC-2010076146

PATIENT
  Sex: Female

DRUGS (4)
  1. NORVASC [Suspect]
     Indication: HYPERTENSION
     Dosage: 5 MG, 1X/DAY
     Route: 048
     Dates: start: 20080101
  2. AMLODIPINE BESILATE [Suspect]
     Indication: HYPERTENSION
     Dosage: 5 MG, 1X/DAY
     Route: 048
  3. TOPROL-XL [Concomitant]
     Indication: BLOOD PRESSURE ABNORMAL
     Dosage: 50 MG, 1X/DAY
     Route: 048
     Dates: start: 19990101
  4. ACETYLSALICYLIC ACID [Concomitant]
     Indication: ARTERIOSCLEROSIS
     Dosage: 325 MG, 1X/DAY
     Route: 048
     Dates: start: 20040101

REACTIONS (1)
  - DRUG INEFFECTIVE [None]
